FAERS Safety Report 9130007 (Version 3)
Quarter: 2013Q1

REPORT INFORMATION
  Report Type: Spontaneous
  Country: JP (occurrence: JP)
  Receive Date: 20130228
  Receipt Date: 20130327
  Transmission Date: 20140127
  Serious: Yes (Hospitalization)
  Sender: FDA-Public Use
  Company Number: JP-ABBOTT-13P-087-1054282-00

PATIENT
  Age: 42 Year
  Sex: Female

DRUGS (3)
  1. LEUPLIN [Suspect]
     Indication: UTERINE LEIOMYOMA
     Route: 058
     Dates: start: 20120924, end: 20121119
  2. FERROMIA [Suspect]
     Indication: ANAEMIA
     Route: 048
     Dates: start: 20120917
  3. NAUZELIN [Concomitant]
     Indication: PRODUCT USED FOR UNKNOWN INDICATION
     Route: 048
     Dates: end: 20121130

REACTIONS (1)
  - Posterior reversible encephalopathy syndrome [Recovered/Resolved]
